FAERS Safety Report 5157948-2 (Version None)
Quarter: 2006Q4

REPORT INFORMATION
  Report Type: 
  Country: None (occurrence: None)
  Receive Date: 20061116
  Receipt Date: 20061004
  Transmission Date: 20070319
  Serious: Yes (Hospitalization, Other)
  Sender: FDA-Public Use
  Company Number: 2006096153

PATIENT
  Age: 59 Year
  Sex: Male
  Weight: 80.7403 kg

DRUGS (1)
  1. CELEBREX [Suspect]
     Indication: ANTIINFLAMMATORY THERAPY
     Dosage: 200 MG (200 MG, 1 IN 1 D)
     Dates: start: 20040901, end: 20050105

REACTIONS (5)
  - CARDIOVASCULAR DISORDER [None]
  - CEREBROVASCULAR DISORDER [None]
  - CORONARY ARTERY OCCLUSION [None]
  - INJURY [None]
  - MYOCARDIAL INFARCTION [None]
